FAERS Safety Report 9209508 (Version 1)
Quarter: 2013Q1

REPORT INFORMATION
  Report Type: Spontaneous
  Country: US (occurrence: None)
  Receive Date: 20120809
  Receipt Date: 20120809
  Transmission Date: 20140127
  Serious: Yes (Other)
  Sender: FDA-Public Use
  Company Number: 2012US004089

PATIENT
  Age: 62 Year
  Sex: Male
  Weight: 91 kg

DRUGS (2)
  1. VESICARE [Suspect]
     Indication: HYPERTONIC BLADDER
     Dosage: 5 MG, UID/QD, ORAL
     Route: 048
     Dates: start: 20120406
  2. VESICARE [Suspect]
     Indication: IRRITABLE BOWEL SYNDROME
     Dosage: 5 MG, UID/QD, ORAL
     Route: 048
     Dates: start: 20120406

REACTIONS (12)
  - Off label use [None]
  - Drug ineffective [None]
  - Hallucination [None]
  - Hyperhidrosis [None]
  - Muscle spasms [None]
  - Anxiety [None]
  - Hypoaesthesia oral [None]
  - Speech disorder [None]
  - Hot flush [None]
  - Dyspepsia [None]
  - Dry mouth [None]
  - Pruritus [None]
